FAERS Safety Report 19057907 (Version 1)
Quarter: 2021Q1

REPORT INFORMATION
  Report Type: Spontaneous
  Country: FR (occurrence: FR)
  Receive Date: 20210325
  Receipt Date: 20210325
  Transmission Date: 20210420
  Serious: Yes (Disabling)
  Sender: FDA-Public Use
  Company Number: FR-BAYER-2021-112057

PATIENT
  Age: 66 Year
  Sex: Female
  Weight: 64 kg

DRUGS (4)
  1. AERIUS [EBASTINE] [Concomitant]
     Active Substance: EBASTINE
     Route: 048
  2. FLUTICASONE;VILANTEROL [Concomitant]
     Active Substance: FLUTICASONE FUROATE\VILANTEROL TRIFENATATE
  3. IZILOX [Suspect]
     Active Substance: MOXIFLOXACIN HYDROCHLORIDE
     Indication: BRONCHITIS CHRONIC
     Dosage: 400 MG, QD
     Route: 048
     Dates: start: 20210213, end: 20210220
  4. OMEPRAZOLE. [Concomitant]
     Active Substance: OMEPRAZOLE
     Route: 048

REACTIONS (2)
  - Tinnitus [Not Recovered/Not Resolved]
  - Deafness unilateral [Not Recovered/Not Resolved]

NARRATIVE: CASE EVENT DATE: 20210224
